FAERS Safety Report 10297608 (Version 2)
Quarter: 2014Q4

REPORT INFORMATION
  Report Type: Spontaneous
  Country: US (occurrence: US)
  Receive Date: 20140711
  Receipt Date: 20141001
  Transmission Date: 20150528
  Serious: No
  Sender: FDA-Public Use
  Company Number: US-TEVA-493414USA

PATIENT
  Sex: Female

DRUGS (2)
  1. COPAXONE [Suspect]
     Active Substance: GLATIRAMER ACETATE
     Dates: start: 2014
  2. COPAXONE [Suspect]
     Active Substance: GLATIRAMER ACETATE
     Indication: MULTIPLE SCLEROSIS

REACTIONS (7)
  - Chills [Unknown]
  - Rash [Unknown]
  - Gait disturbance [Unknown]
  - Injection site reaction [Unknown]
  - Tremor [Unknown]
  - Chest discomfort [Unknown]
  - Dyspnoea [Unknown]
